FAERS Safety Report 25103210 (Version 2)
Quarter: 2025Q2

REPORT INFORMATION
  Report Type: Spontaneous
  Country: BR (occurrence: BR)
  Receive Date: 20250321
  Receipt Date: 20250419
  Transmission Date: 20250717
  Serious: Yes (Life-Threatening, Hospitalization)
  Sender: HETERO
  Company Number: BR-HETERO-HET2025BR01305

PATIENT
  Sex: Female
  Weight: 77 kg

DRUGS (1)
  1. PROPOFOL [Suspect]
     Active Substance: PROPOFOL
     Indication: Product used for unknown indication
     Route: 042
     Dates: start: 20250213

REACTIONS (1)
  - Anaphylactic shock [Recovering/Resolving]
